FAERS Safety Report 20000847 (Version 1)
Quarter: 2021Q4

REPORT INFORMATION
  Report Type: Spontaneous
  Country: US (occurrence: US)
  Receive Date: 20211027
  Receipt Date: 20211027
  Transmission Date: 20220303
  Serious: Yes (Hospitalization)
  Sender: FDA-Public Use
  Company Number: None

PATIENT
  Age: 71 Year
  Sex: Male
  Weight: 121.56 kg

DRUGS (2)
  1. DIVALPROEX SODIUM [Suspect]
     Active Substance: DIVALPROEX SODIUM
     Indication: Bipolar disorder
     Route: 048
     Dates: start: 20170818, end: 20210723
  2. DIVALPROEX SODIUM [Suspect]
     Active Substance: DIVALPROEX SODIUM
     Indication: Post-traumatic stress disorder

REACTIONS (10)
  - Urinary incontinence [None]
  - Asthenia [None]
  - Asterixis [None]
  - Pancytopenia [None]
  - Tremor [None]
  - Mental status changes [None]
  - Toxicity to various agents [None]
  - Antipsychotic drug level decreased [None]
  - Cognitive disorder [None]
  - Gait disturbance [None]

NARRATIVE: CASE EVENT DATE: 20210723
